FAERS Safety Report 5003394-1 (Version None)
Quarter: 2006Q2

REPORT INFORMATION
  Report Type: 
  Country: None (occurrence: None)
  Receive Date: 20060511
  Receipt Date: 20060501
  Transmission Date: 20061013
  Serious: Yes (Other)
  Sender: FDA-Public Use
  Company Number: 2006059098

PATIENT
  Sex: Female

DRUGS (3)
  1. CARDENALIN                  (DOXAZOSIN) [Suspect]
     Indication: ILL-DEFINED DISORDER
     Dosage: ORAL
     Route: 048
  2. CONIEL (BENIDIPINE HYDROCHLORIDE) [Concomitant]
  3. ARIMIDEX [Concomitant]

REACTIONS (1)
  - ELECTROCARDIOGRAM QT PROLONGED [None]
